FAERS Safety Report 8992121 (Version 1)
Quarter: 2012Q4

REPORT INFORMATION
  Report Type: 
  Country: US (occurrence: US)
  Receive Date: 20121231
  Receipt Date: 20121231
  Transmission Date: 20130627
  Serious: Yes (Death)
  Sender: FDA-Public Use
  Company Number: US-ABBOTT-12P-163-1027318-00

PATIENT
  Age: 55 Year
  Sex: Male

DRUGS (2)
  1. ANDROGEL [Suspect]
     Indication: BLOOD TESTOSTERONE DECREASED
     Dosage: Unknown
     Route: 061
     Dates: start: 201211, end: 201211
  2. XANAX [Concomitant]
     Indication: ANXIETY
     Dosage: Unknown

REACTIONS (5)
  - Myocardial infarction [Fatal]
  - Thrombosis [Fatal]
  - Chest pain [Not Recovered/Not Resolved]
  - Wheezing [Not Recovered/Not Resolved]
  - Periorbital haemorrhage [Not Recovered/Not Resolved]
